FAERS Safety Report 4287279-4 (Version None)
Quarter: 2004Q1

REPORT INFORMATION
  Report Type: 
  Country: None (occurrence: None)
  Receive Date: 20040126
  Receipt Date: 20031113
  Transmission Date: 20041129
  Serious: No
  Sender: FDA-Public Use
  Company Number: USA030741187

PATIENT
  Age: 66 Year
  Sex: Female
  Weight: 61 kg

DRUGS (1)
  1. FORTEO [Suspect]
     Indication: OSTEOPOROSIS
     Dosage: 20 UG/DAY
     Dates: start: 20030710

REACTIONS (14)
  - ABNORMAL SENSATION IN EYE [None]
  - DIZZINESS [None]
  - DYSGEUSIA [None]
  - EYE PAIN [None]
  - EYE REDNESS [None]
  - HEADACHE [None]
  - HEART RATE INCREASED [None]
  - INJECTION SITE ERYTHEMA [None]
  - MULTIPLE SCLEROSIS [None]
  - MUSCLE SPASMS [None]
  - MUSCLE TWITCHING [None]
  - MYDRIASIS [None]
  - NAUSEA [None]
  - TREMOR [None]
